FAERS Safety Report 17742908 (Version 1)
Quarter: 2020Q2

REPORT INFORMATION
  Report Type: Spontaneous
  Country: DE (occurrence: DE)
  Receive Date: 20200504
  Receipt Date: 20200504
  Transmission Date: 20200714
  Serious: Yes (Other)
  Sender: FDA-Public Use
  Company Number: NVSC2020DE119649

PATIENT
  Sex: Female

DRUGS (1)
  1. METOHEXAL SUCC 47,5 MG RETARDTABLETTEN [Suspect]
     Active Substance: METOPROLOL SUCCINATE
     Indication: PRODUCT USED FOR UNKNOWN INDICATION
     Dosage: 1 DF, QD
     Route: 065
     Dates: start: 20200107

REACTIONS (9)
  - Eye inflammation [Unknown]
  - Bronchitis [Unknown]
  - Muscle spasms [Unknown]
  - Peripheral coldness [Unknown]
  - Dyspepsia [Unknown]
  - Post procedural complication [Unknown]
  - Erythema [Unknown]
  - Rash pruritic [Unknown]
  - Back disorder [Unknown]

NARRATIVE: CASE EVENT DATE: 2020
